FAERS Safety Report 8976767 (Version 2)
Quarter: 2012Q4

REPORT INFORMATION
  Report Type: 
  Country: CH (occurrence: CH)
  Receive Date: 20121220
  Receipt Date: 20121227
  Transmission Date: 20130627
  Serious: Yes (Other)
  Sender: FDA-Public Use
  Company Number: CH-PFIZER INC-2012317514

PATIENT
  Age: 68 Year
  Sex: Male

DRUGS (6)
  1. SORTIS [Suspect]
     Dosage: 40 mg, 1x/day
     Route: 048
     Dates: start: 20121102, end: 20121120
  2. AMLODIPINE BESILATE [Suspect]
     Dosage: 5 mg, 1x/day
     Route: 048
     Dates: start: 20121102, end: 20121120
  3. XARELTO [Suspect]
     Dosage: 20 mg, 1x/day
     Route: 048
     Dates: start: 20121106, end: 20121120
  4. DAFALGAN [Suspect]
     Dosage: 3-4 g, daily
     Route: 048
     Dates: start: 20121115
  5. ATACAND [Concomitant]
     Indication: HYPERTENSION ARTERIAL
     Dosage: 4 mg, 1x/day
  6. CITALOPRAM [Concomitant]
     Indication: DEPRESSIVE DISORDER
     Dosage: 20 mg, 1x/day

REACTIONS (6)
  - Pyrexia [Recovering/Resolving]
  - Mixed liver injury [Recovering/Resolving]
  - Blood albumin decreased [Unknown]
  - C-reactive protein increased [Unknown]
  - Platelet count decreased [Unknown]
  - Prothrombin time shortened [Unknown]
